FAERS Safety Report 9800465 (Version 1)
Quarter: 2014Q1

REPORT INFORMATION
  Report Type: Spontaneous
  Country: US (occurrence: US)
  Receive Date: 20140107
  Receipt Date: 20140107
  Transmission Date: 20141002
  Serious: Yes (Other)
  Sender: FDA-Public Use
  Company Number: PHHY2013US153424

PATIENT
  Age: 68 Year
  Sex: Female

DRUGS (3)
  1. VORICONAZOLE [Suspect]
     Indication: BRONCHOPULMONARY ASPERGILLOSIS
     Dosage: 200 MG, BID
     Route: 048
  2. RITUXIMAB [Concomitant]
  3. PREDNISONE [Concomitant]

REACTIONS (4)
  - Red blood cell sedimentation rate increased [Recovered/Resolved]
  - Periostitis [Recovered/Resolved]
  - Arthralgia [Recovered/Resolved]
  - Blood alkaline phosphatase increased [Recovered/Resolved]
